FAERS Safety Report 15646709 (Version 1)
Quarter: 2018Q4

REPORT INFORMATION
  Report Type: Spontaneous
  Country: US (occurrence: US)
  Receive Date: 20181122
  Receipt Date: 20181122
  Transmission Date: 20190205
  Serious: No
  Sender: FDA-Public Use
  Company Number: US-ESPERO PHARMACEUTICALS-ESP201712-000094

PATIENT
  Sex: Male

DRUGS (5)
  1. NITROLINGUAL PUMPSPRAY [Suspect]
     Active Substance: NITROGLYCERIN
     Indication: PAIN IN EXTREMITY
  2. NITROLINGUAL PUMPSPRAY [Suspect]
     Active Substance: NITROGLYCERIN
     Indication: MUSCULOSKELETAL PAIN
  3. VALIUM [Concomitant]
     Active Substance: DIAZEPAM
  4. LOSARTAN POTASSIUM. [Concomitant]
     Active Substance: LOSARTAN POTASSIUM
     Indication: HYPERTENSION
     Route: 048
  5. NITROLINGUAL PUMPSPRAY [Suspect]
     Active Substance: NITROGLYCERIN
     Indication: CHEST PAIN
     Dates: start: 20171224, end: 20171226

REACTIONS (2)
  - Product quality issue [Unknown]
  - Drug ineffective [Unknown]

NARRATIVE: CASE EVENT DATE: 20171226
